FAERS Safety Report 6220292-6 (Version None)
Quarter: 2009Q2

REPORT INFORMATION
  Report Type: 
  Country: None (occurrence: None)
  Receive Date: 20090521
  Receipt Date: 20090417
  Transmission Date: 20091009
  Serious: Yes (Hospitalization, Other)
  Sender: FDA-Public Use
  Company Number: UK304994

PATIENT
  Sex: Female
  Weight: 38 kg

DRUGS (3)
  1. KINERET [Suspect]
     Indication: BLOOD IMMUNOGLOBULIN D INCREASED
     Dosage: (100 MG SUBCUTANEOUS), (50 MG SUBCUTANEOUS)
     Route: 058
     Dates: start: 20050712, end: 20080124
  2. KINERET [Suspect]
     Indication: BLOOD IMMUNOGLOBULIN D INCREASED
     Dosage: (100 MG SUBCUTANEOUS), (50 MG SUBCUTANEOUS)
     Route: 058
     Dates: start: 20080826, end: 20080829
  3. NEUPOGEN [Suspect]
     Dosage: (0.5 MG/KG UNKNOWN)
     Dates: start: 20080829

REACTIONS (6)
  - AUTOIMMUNE DISORDER [None]
  - CONDITION AGGRAVATED [None]
  - HERPES VIRUS INFECTION [None]
  - NEUTROPENIA [None]
  - OFF LABEL USE [None]
  - WHITE BLOOD CELL COUNT DECREASED [None]
